FAERS Safety Report 7792578-5 (Version None)
Quarter: 2011Q4

REPORT INFORMATION
  Report Type: 
  Country: None (occurrence: None)
  Receive Date: 20111003
  Receipt Date: 20110921
  Transmission Date: 20120403
  Serious: Yes (Hospitalization, Other)
  Sender: FDA-Public Use
  Company Number: US-BAYER-2011-013066

PATIENT
  Age: 23 Year
  Sex: Female

DRUGS (16)
  1. YAZ [Suspect]
     Indication: CONTRACEPTION
     Dosage: UNK
     Dates: start: 20070101, end: 20080212
  2. YASMIN [Suspect]
     Indication: CONTRACEPTION
     Dosage: UNK
     Dates: start: 20020901, end: 20030901
  3. PROMETHAZINE [Concomitant]
     Indication: NAUSEA
     Dosage: 25 MG, UNK
     Dates: start: 20081202
  4. AZITHROMYCIN [Concomitant]
     Dosage: UNK
     Dates: start: 20081229
  5. YAZ [Suspect]
     Indication: PREMENSTRUAL SYNDROME
  6. CLONAZEPAM [Concomitant]
     Indication: ANXIETY
     Dosage: UNK UNK, PRN
     Dates: start: 20070901, end: 20100101
  7. PHENTERMINE [Concomitant]
     Indication: WEIGHT DECREASED
     Dosage: UNK
     Dates: start: 20071201, end: 20091217
  8. HYDROCODONE BITARTRATE AND ACETAMINOPHEN [Concomitant]
     Dosage: UNK
     Dates: start: 20081202, end: 20100128
  9. YASMIN [Suspect]
     Dosage: UNK
     Dates: start: 20080225, end: 20090401
  10. CLONAZEPAM [Concomitant]
     Indication: PAIN
  11. PANTOPRAZOLE [Concomitant]
     Dosage: 40 MG, UNK
     Dates: start: 20080902, end: 20081201
  12. BETAMETHASONE [Concomitant]
     Dosage: 0.05 %, UNK
     Dates: start: 20081229
  13. YASMIN [Suspect]
     Indication: PREMENSTRUAL SYNDROME
     Dosage: UNK
     Dates: start: 20060801, end: 20061201
  14. PROMETHAZINE [Concomitant]
     Indication: MULTIPLE ALLERGIES
     Dosage: 25 MG, UNK
     Dates: start: 20080801, end: 20090201
  15. PROMETHAZINE [Concomitant]
     Indication: VOMITING
     Dosage: 25 MG, UNK
     Dates: start: 20090228
  16. GABAPENTIN [Concomitant]
     Dosage: 300 MG, UNK
     Dates: start: 20090212

REACTIONS (5)
  - EMOTIONAL DISTRESS [None]
  - PAIN [None]
  - CHOLECYSTITIS CHRONIC [None]
  - GALLBLADDER INJURY [None]
  - ANXIETY [None]
